FAERS Safety Report 5741100-3 (Version None)
Quarter: 2008Q2

REPORT INFORMATION
  Report Type: 
  Country: None (occurrence: None)
  Receive Date: 20080516
  Receipt Date: 20080506
  Transmission Date: 20081010
  Serious: Yes (Other)
  Sender: FDA-Public Use
  Company Number: NL-PFIZER INC-2008039884

PATIENT
  Age: 73 Year
  Sex: Male

DRUGS (3)
  1. PREGABALIN [Suspect]
     Dosage: DAILY DOSE:150MG
  2. BUMETANIDE [Suspect]
     Dosage: DAILY DOSE:6MG
  3. METHADONE HCL [Concomitant]
     Dosage: DAILY DOSE:10MG

REACTIONS (5)
  - CARDIAC FAILURE [None]
  - DRUG INEFFECTIVE [None]
  - PAIN [None]
  - RENAL IMPAIRMENT [None]
  - SLEEP DISORDER [None]
